FAERS Safety Report 24990021 (Version 1)
Quarter: 2025Q1

REPORT INFORMATION
  Report Type: Spontaneous
  Country: US (occurrence: None)
  Receive Date: 20250219
  Receipt Date: 20250219
  Transmission Date: 20250409
  Serious: Yes (Hospitalization)
  Sender: FDA-CTU
  Company Number: None

PATIENT
  Age: 64 Year
  Sex: Male
  Weight: 83.25 kg

DRUGS (1)
  1. BIKTARVY [Suspect]
     Active Substance: BICTEGRAVIR SODIUM\EMTRICITABINE\TENOFOVIR ALAFENAMIDE FUMARATE
     Indication: HIV infection
     Dates: start: 20230928, end: 20231224

REACTIONS (4)
  - Feeling abnormal [None]
  - Urinary tract disorder [None]
  - Dysuria [None]
  - Calculus urinary [None]

NARRATIVE: CASE EVENT DATE: 20231224
